FAERS Safety Report 9008543 (Version 1)
Quarter: 2013Q1

REPORT INFORMATION
  Report Type: Spontaneous
  Country: US (occurrence: US)
  Receive Date: 20130111
  Receipt Date: 20130111
  Transmission Date: 20140127
  Serious: No
  Sender: FDA-Public Use
  Company Number: US-BAYER-2012-136474

PATIENT
  Age: 75 Year
  Sex: Female
  Weight: 65.76 kg

DRUGS (2)
  1. ALEVE-D SINUS + COLD [Suspect]
     Indication: NASAL CONGESTION
     Dosage: 1 DF, ONCE
     Route: 048
     Dates: start: 201212, end: 201212
  2. ALEVE CAPLET/TABLET,MIDOL EXTENDED RELIEF CAPLET [Suspect]
     Indication: ARTHRITIS
     Dosage: 2 DF, QD
     Route: 048
     Dates: start: 201212

REACTIONS (3)
  - Dizziness [Recovered/Resolved]
  - Nausea [Recovered/Resolved]
  - Incorrect drug administration duration [None]
